FAERS Safety Report 6564889-2 (Version None)
Quarter: 2010Q1

REPORT INFORMATION
  Report Type: 
  Country: None (occurrence: None)
  Receive Date: 20100201
  Receipt Date: 20100121
  Transmission Date: 20100710
  Serious: Yes (Other)
  Sender: FDA-Public Use
  Company Number: US-SANOFI-AVENTIS-2010SA004764

PATIENT
  Age: 28 Year
  Sex: Female

DRUGS (1)
  1. NASACORT AQ [Suspect]
     Indication: EAR PAIN
     Dosage: 2 SPRAYS IN EACH NOSTRIL; FOR A TOTAL OF 3 DOSES. DOSE:2 PUFF(S)
     Route: 045
     Dates: start: 20100120

REACTIONS (4)
  - EYELID PTOSIS [None]
  - FACIAL PALSY [None]
  - MYDRIASIS [None]
  - PARAESTHESIA ORAL [None]
